FAERS Safety Report 17566579 (Version 1)
Quarter: 2020Q1

REPORT INFORMATION
  Report Type: Report from Study
  Country: IT (occurrence: IT)
  Receive Date: 20200320
  Receipt Date: 20200320
  Transmission Date: 20200409
  Serious: Yes (Hospitalization)
  Sender: FDA-Public Use
  Company Number: IT-PFIZER INC-2020119717

PATIENT
  Age: 45 Year
  Sex: Female

DRUGS (7)
  1. LASITONE [Concomitant]
     Active Substance: FUROSEMIDE\SPIRONOLACTONE
     Dosage: 1 DF, UNK
     Route: 048
  2. ACARBOSE. [Concomitant]
     Active Substance: ACARBOSE
     Dosage: 50 MG, UNK
     Route: 048
  3. XANAX [Suspect]
     Active Substance: ALPRAZOLAM
     Indication: ACCIDENTAL OVERDOSE
     Dosage: 20 ML, SINGLE
     Route: 048
     Dates: start: 20200111, end: 20200111
  4. ZYLORIC [Concomitant]
     Active Substance: ALLOPURINOL
     Dosage: 1 DF, UNK
     Route: 048
  5. DIDROGYL [Concomitant]
     Active Substance: CALCIFEDIOL
     Dosage: 10 GTT, UNK
     Route: 048
  6. OXYCONTIN [Concomitant]
     Active Substance: OXYCODONE HYDROCHLORIDE
     Dosage: 2 DF, UNK
     Route: 048
  7. MODURETIC 5-50 [Concomitant]
     Active Substance: AMILORIDE HYDROCHLORIDE\HYDROCHLOROTHIAZIDE
     Dosage: 1 DF, UNK
     Route: 048

REACTIONS (3)
  - Confusional state [Recovered/Resolved]
  - Sopor [Recovered/Resolved]
  - Accidental overdose [Recovered/Resolved]

NARRATIVE: CASE EVENT DATE: 20200111
